FAERS Safety Report 15723577 (Version 10)
Quarter: 2019Q4

REPORT INFORMATION
  Report Type: Report from Study
  Country: CA (occurrence: CA)
  Receive Date: 20181214
  Receipt Date: 20191018
  Transmission Date: 20200122
  Serious: Yes (Other)
  Sender: FDA-Public Use
  Company Number: CA-JNJFOC-20180844105

PATIENT
  Age: 57 Year
  Sex: Female
  Weight: 122 kg

DRUGS (7)
  1. REMICADE [Suspect]
     Active Substance: INFLIXIMAB
     Route: 042
     Dates: start: 20190424
  2. CEFUROXIME. [Suspect]
     Active Substance: CEFUROXIME
     Indication: SINUSITIS
     Route: 065
     Dates: start: 20181017, end: 20181020
  3. IMURAN [Concomitant]
     Active Substance: AZATHIOPRINE
     Route: 065
  4. REMICADE [Suspect]
     Active Substance: INFLIXIMAB
     Indication: CROHN^S DISEASE
     Dosage: STRENGTH = 100 MG
     Route: 042
     Dates: start: 20180104
  5. REMICADE [Suspect]
     Active Substance: INFLIXIMAB
     Route: 042
     Dates: start: 20180104
  6. VITAMIN B12 [Concomitant]
     Active Substance: CYANOCOBALAMIN
     Route: 065
  7. VITAMIN B12 [Concomitant]
     Active Substance: CYANOCOBALAMIN
     Route: 060

REACTIONS (16)
  - Viral infection [Unknown]
  - Off label use [Unknown]
  - Psychomotor hyperactivity [Unknown]
  - Skin disorder [Recovered/Resolved]
  - Rash pruritic [Recovered/Resolved]
  - Dry skin [Recovered/Resolved]
  - Sinusitis [Not Recovered/Not Resolved]
  - Neoplasm malignant [Unknown]
  - Crohn^s disease [Recovering/Resolving]
  - Product use issue [Unknown]
  - Abscess [Recovering/Resolving]
  - Asthenia [Recovering/Resolving]
  - Drug hypersensitivity [Unknown]
  - Drug level below therapeutic [Unknown]
  - Drug ineffective [Unknown]
  - Stress [Not Recovered/Not Resolved]

NARRATIVE: CASE EVENT DATE: 2018
